FAERS Safety Report 4411022-9 (Version None)
Quarter: 2004Q2

REPORT INFORMATION
  Report Type: 
  Country: None (occurrence: None)
  Receive Date: 20040630
  Receipt Date: 20040510
  Transmission Date: 20050107
  Serious: No
  Sender: FDA-Public Use
  Company Number: 04P-163-0206116-00

PATIENT
  Age: 17 Year
  Sex: Male
  Weight: 68.0396 kg

DRUGS (4)
  1. HUMIRA [Suspect]
     Indication: JUVENILE ARTHRITIS
     Dosage: 40 MG, 1 IN 2 WK; SUBCUTANEOUS
     Route: 058
     Dates: start: 20040401
  2. GROWTH HORMONE SHOT [Concomitant]
  3. DESMOPRESSIN [Concomitant]
  4. TESTOSTERONE [Concomitant]

REACTIONS (1)
  - RASH PRURITIC [None]
